FAERS Safety Report 9852750 (Version 1)
Quarter: 2014Q1

REPORT INFORMATION
  Report Type: Spontaneous
  Country: IT (occurrence: None)
  Receive Date: 20140127
  Receipt Date: 20140127
  Transmission Date: 20141002
  Serious: Yes (Other)
  Sender: FDA-Public Use
  Company Number: 2013RR-76972

PATIENT
  Age: 63 Year
  Sex: Male

DRUGS (4)
  1. ACICLOVIR (ACICLOVIR) [Suspect]
     Indication: PRODUCT USED FOR UNKNOWN INDICATION
     Route: 061
     Dates: start: 20131125, end: 20131201
  2. DIAMICRON (GLICLAZIDE) MODIFIED-RELEASE TABLET, 30 MG [Concomitant]
  3. METFORMIN (METFORMIN) [Concomitant]
  4. SIMVASTATIN (SIMVASTATIN) [Concomitant]

REACTIONS (2)
  - Diplopia [None]
  - Eye oedema [None]
